FAERS Safety Report 9333426 (Version 2)
Quarter: 2013Q2

REPORT INFORMATION
  Report Type: Spontaneous
  Country: US (occurrence: None)
  Receive Date: 20130604
  Receipt Date: 20130606
  Transmission Date: 20140414
  Serious: Yes (Hospitalization)
  Sender: FDA-Public Use
  Company Number: USA/USA/13/0029789

PATIENT
  Age: 17 Year
  Sex: Female

DRUGS (2)
  1. IBUPROFEN (IBUPROFEN) [Suspect]
     Indication: PRODUCT USED FOR UNKNOWN INDICATION
  2. CLARAVIS [Suspect]
     Indication: PRODUCT USED FOR UNKNOWN INDICATION
     Route: 048

REACTIONS (3)
  - Depression [None]
  - Stress [None]
  - Overdose [None]
